FAERS Safety Report 13558775 (Version 1)
Quarter: 2017Q2

REPORT INFORMATION
  Report Type: Other
  Country: JP (occurrence: JP)
  Receive Date: 20170518
  Receipt Date: 20170518
  Transmission Date: 20170830
  Serious: Yes (Other)
  Sender: FDA-Public Use
  Company Number: JP-LUPIN (EUROPE) LIMITED-2016-04006

PATIENT
  Age: 44 Year
  Sex: Male

DRUGS (1)
  1. QUETIAPINE FUMARATE. [Suspect]
     Active Substance: QUETIAPINE FUMARATE
     Indication: PRODUCT USED FOR UNKNOWN INDICATION
     Dosage: 12.5 MG,UNK,UNKNOWN
     Route: 065
     Dates: start: 201311, end: 201405

REACTIONS (1)
  - Tardive dyskinesia [Unknown]
